FAERS Safety Report 7187300-X (Version None)
Quarter: 2010Q4

REPORT INFORMATION
  Report Type: 
  Country: None (occurrence: None)
  Receive Date: 20101222
  Receipt Date: 20101210
  Transmission Date: 20110411
  Serious: Yes (Hospitalization, Other)
  Sender: FDA-Public Use
  Company Number: FR-ELI_LILLY_AND_COMPANY-FR201012002494

PATIENT
  Sex: Female

DRUGS (2)
  1. PROZAC [Suspect]
     Indication: DEPRESSION
     Dosage: UNK, UNK
     Route: 048
     Dates: end: 20101004
  2. TOPALGIC LP [Concomitant]
     Dosage: 100 MG, 2/D
     Route: 048
     Dates: start: 20100923, end: 20101004

REACTIONS (7)
  - COLITIS [None]
  - GASTRITIS [None]
  - HYPOGLYCAEMIA [None]
  - INTESTINAL OBSTRUCTION [None]
  - POST GASTRIC SURGERY SYNDROME [None]
  - SUBILEUS [None]
  - SYNCOPE [None]
